FAERS Safety Report 20459946 (Version 3)
Quarter: 2022Q1

REPORT INFORMATION
  Report Type: Report from Study
  Country: JP (occurrence: JP)
  Receive Date: 20220211
  Receipt Date: 20220221
  Transmission Date: 20220423
  Serious: Yes (Hospitalization)
  Sender: FDA-Public Use
  Company Number: JP-CHUGAI-2022002468

PATIENT
  Age: 38 Year
  Sex: Female
  Weight: 49.9 kg

DRUGS (8)
  1. ATEZOLIZUMAB [Suspect]
     Active Substance: ATEZOLIZUMAB
     Indication: Cervix carcinoma
     Dosage: 1200 MILLIGRAM
     Route: 041
     Dates: start: 20220106
  2. CEFTRIAXONE SODIUM [Suspect]
     Active Substance: CEFTRIAXONE SODIUM
     Indication: Pyrexia
     Dosage: 2 GRAM,
     Route: 065
     Dates: start: 20220121, end: 20220124
  3. ACETAMINOPHEN [Suspect]
     Active Substance: ACETAMINOPHEN
     Indication: Pyrexia
     Dosage: 500 MILLIGRAM-1000 MILLIGRAM/ TIME, PRN
     Route: 065
     Dates: start: 20220121, end: 20220125
  4. CALONAL [Suspect]
     Active Substance: ACETAMINOPHEN
     Indication: Pyrexia
     Dosage: 400 MILLIGRAM-1600 MILLIGRAM/DAY,
     Route: 048
     Dates: start: 20220118, end: 20220122
  5. DIVIGEL [Concomitant]
     Active Substance: ESTRADIOL
     Indication: Hot flush
     Dosage: 1 MILLIGRAM, QD, START DATE: BEFORE THE START OF THE STUDY
     Route: 062
  6. FEXOFENADINE HYDROCHLORIDE [Concomitant]
     Active Substance: FEXOFENADINE HYDROCHLORIDE
     Indication: Pruritus
     Dosage: 40 MILLIGRAM, BID
     Route: 048
     Dates: start: 20220125
  7. LOXOPROFEN SODIUM [Concomitant]
     Active Substance: LOXOPROFEN SODIUM
     Indication: Pyrexia
     Dosage: 60 MILLIGRAM, TID
     Route: 048
     Dates: start: 20220125
  8. SODIUM CHLORIDE [Concomitant]
     Active Substance: SODIUM CHLORIDE
     Indication: Fluid replacement
     Dosage: 500-1500 MILLILITER/DAY, UNK
     Route: 041
     Dates: start: 20220124

REACTIONS (1)
  - Liver disorder [Recovering/Resolving]

NARRATIVE: CASE EVENT DATE: 20220126
